FAERS Safety Report 25918204 (Version 1)
Quarter: 2025Q4

REPORT INFORMATION
  Report Type: Report from Study
  Country: EU (occurrence: EU)
  Receive Date: 20251014
  Receipt Date: 20251014
  Transmission Date: 20260117
  Serious: Yes (Other)
  Sender: ROCHE
  Company Number: EU-ROCHE-10000407617

PATIENT

DRUGS (1)
  1. BEVACIZUMAB [Suspect]
     Active Substance: BEVACIZUMAB
     Indication: Hereditary haemorrhagic telangiectasia
     Dosage: EVERY 2-3 WEEK
     Route: 042

REACTIONS (25)
  - Hypertension [Unknown]
  - Proteinuria [Unknown]
  - Headache [Unknown]
  - Arthralgia [Unknown]
  - Deep vein thrombosis [Unknown]
  - Haemorrhage [Unknown]
  - Cardiac failure [Unknown]
  - Skin ulcer [Unknown]
  - Infection [Unknown]
  - Onychoclasis [Unknown]
  - Alopecia [Unknown]
  - Fatigue [Unknown]
  - Leukopenia [Unknown]
  - Dyspnoea [Unknown]
  - Thrombosis [Unknown]
  - Gastrointestinal disorder [Unknown]
  - Off label use [Unknown]
  - Neuropathy peripheral [Unknown]
  - Hypersensitivity [Unknown]
  - Bronchospasm [Unknown]
  - Skin infection [Unknown]
  - Confusional state [Unknown]
  - Intestinal ischaemia [Unknown]
  - Peripheral coldness [Unknown]
  - Hypoaesthesia [Unknown]
